FAERS Safety Report 19894882 (Version 8)
Quarter: 2022Q1

REPORT INFORMATION
  Report Type: Spontaneous
  Country: CA (occurrence: CA)
  Receive Date: 20210928
  Receipt Date: 20220226
  Transmission Date: 20220424
  Serious: Yes (Other)
  Sender: FDA-Public Use
  Company Number: CA-CELLTRION INC.-2021CA013043

PATIENT

DRUGS (7)
  1. INFLECTRA [Suspect]
     Active Substance: INFLIXIMAB-DYYB
     Indication: Crohn^s disease
     Dosage: 400MG, 0, 2, 6 WEEK THEN, EVERY 8 WEEKS,
     Route: 042
     Dates: start: 20171228, end: 20190408
  2. INFLECTRA [Suspect]
     Active Substance: INFLIXIMAB-DYYB
     Dosage: 400 MG, EVERY 7 WEEK
     Route: 042
     Dates: start: 20190729, end: 20190729
  3. INFLECTRA [Suspect]
     Active Substance: INFLIXIMAB-DYYB
     Dosage: 400 MG, EVERY 6 WEEK
     Route: 042
     Dates: start: 20190903
  4. INFLECTRA [Suspect]
     Active Substance: INFLIXIMAB-DYYB
     Dosage: 400 MG, EVERY 6 WEEK
     Route: 042
     Dates: start: 20210713
  5. INFLECTRA [Suspect]
     Active Substance: INFLIXIMAB-DYYB
     Dosage: 400 MG, EVERY 6 WEEK
     Route: 042
     Dates: start: 20220118
  6. ADVIL [Concomitant]
     Active Substance: IBUPROFEN
     Dosage: 1 DF
     Route: 065
  7. CODEINE [Concomitant]
     Active Substance: CODEINE
     Dosage: 1 DF

REACTIONS (13)
  - Gingivitis [Unknown]
  - Cardiac arrest [Unknown]
  - Drug specific antibody present [Unknown]
  - Weight decreased [Unknown]
  - Depression [Unknown]
  - Tooth injury [Unknown]
  - Sleep disorder [Unknown]
  - Diarrhoea [Unknown]
  - Cough [Unknown]
  - Feeling abnormal [Unknown]
  - Condition aggravated [Not Recovered/Not Resolved]
  - Off label use [Unknown]
  - Inappropriate schedule of product administration [Unknown]

NARRATIVE: CASE EVENT DATE: 20190729
